FAERS Safety Report 13886357 (Version 1)
Quarter: 2017Q3

REPORT INFORMATION
  Report Type: Spontaneous
  Country: US (occurrence: US)
  Receive Date: 20170821
  Receipt Date: 20170821
  Transmission Date: 20171127
  Serious: No
  Sender: FDA-Public Use
  Company Number: US-ALLERGAN-1707039US

PATIENT
  Sex: Male
  Weight: 74.83 kg

DRUGS (1)
  1. ANDRODERM [Suspect]
     Active Substance: TESTOSTERONE
     Indication: HYPOGONADISM
     Dosage: 4 MG, QOD
     Route: 062
     Dates: start: 2009

REACTIONS (2)
  - Inappropriate schedule of drug administration [Unknown]
  - Cardiac pacemaker insertion [Recovered/Resolved]
